FAERS Safety Report 4645138-9 (Version None)
Quarter: 2005Q2

REPORT INFORMATION
  Report Type: 
  Country: None (occurrence: None)
  Receive Date: 20050422
  Receipt Date: 20050412
  Transmission Date: 20051028
  Serious: Yes (Hospitalization, Disabling)
  Sender: FDA-Public Use
  Company Number: HQWYE968609MAR05

PATIENT
  Age: 53 Year
  Sex: Male

DRUGS (1)
  1. RAPAMUNE [Suspect]
     Dosage: SEE IMAGE
     Route: 048
     Dates: start: 20041216

REACTIONS (2)
  - IMPAIRED HEALING [None]
  - MITRAL VALVE DISEASE [None]
